FAERS Safety Report 7708003-6 (Version None)
Quarter: 2011Q3

REPORT INFORMATION
  Report Type: 
  Country: None (occurrence: None)
  Receive Date: 20110824
  Receipt Date: 20110816
  Transmission Date: 20111222
  Serious: Yes (Death)
  Sender: FDA-Public Use
  Company Number: US-CELGENEUS-163-21880-11072706

PATIENT
  Age: 67 Year
  Sex: Male

DRUGS (14)
  1. DECADRON [Concomitant]
     Dosage: 4 MILLIGRAM
     Route: 065
     Dates: start: 20110101
  2. DECADRON [Concomitant]
     Dosage: 1 MILLIGRAM
     Route: 065
     Dates: start: 20110101
  3. FAMOTIDINE [Concomitant]
     Route: 065
  4. PRAVASTATIN [Concomitant]
     Route: 065
  5. LANTUS [Concomitant]
     Route: 065
  6. SERTRALINE HYDROCHLORIDE [Concomitant]
     Route: 065
  7. OMEPRAZOLE [Concomitant]
     Route: 065
  8. ROBAXIN [Concomitant]
     Route: 065
  9. REVLIMID [Suspect]
     Dosage: 10 MILLIGRAM
     Route: 048
     Dates: start: 20110106, end: 20110125
  10. EVEROLIMUS [Concomitant]
     Route: 065
     Dates: start: 20110301, end: 20110601
  11. NOVOLOG [Concomitant]
     Route: 065
  12. PEPCID [Concomitant]
     Route: 065
     Dates: start: 20110101
  13. ASPIRIN [Concomitant]
     Route: 065
  14. VARDENAFIL HYDROCHLORIDE (LEVITRA) [Concomitant]
     Route: 065

REACTIONS (4)
  - HODGKIN'S DISEASE [None]
  - RASH [None]
  - BLOOD GLUCOSE INCREASED [None]
  - NEOPLASM PROGRESSION [None]
